FAERS Safety Report 24852550 (Version 1)
Quarter: 2025Q1

REPORT INFORMATION
  Report Type: Spontaneous
  Country: US (occurrence: US)
  Receive Date: 20250116
  Receipt Date: 20250116
  Transmission Date: 20250409
  Serious: No
  Sender: SK LIFE SCIENCE
  Company Number: US-SK LIFE SCIENCE, INC-SKPVG-2024-002433

PATIENT

DRUGS (3)
  1. XCOPRI [Suspect]
     Active Substance: CENOBAMATE
     Indication: Epilepsy
     Route: 065
  2. XCOPRI [Suspect]
     Active Substance: CENOBAMATE
     Dosage: 25MG TABLET PLUS 100MG TABLET DAILY
     Route: 065
     Dates: start: 20240928
  3. XCOPRI [Suspect]
     Active Substance: CENOBAMATE
     Dosage: 100MG TABLET PLUS 25MG TABLET DAILY
     Route: 065
     Dates: start: 20240928

REACTIONS (2)
  - Seizure [Unknown]
  - Off label use [Unknown]

NARRATIVE: CASE EVENT DATE: 20240928
